FAERS Safety Report 9248784 (Version 3)
Quarter: 2013Q3

REPORT INFORMATION
  Report Type: Report from Study
  Country: DE (occurrence: DE)
  Receive Date: 20130423
  Receipt Date: 20130724
  Transmission Date: 20140515
  Serious: Yes (Death, Other)
  Sender: FDA-Public Use
  Company Number: DE-ROCHE-1215888

PATIENT
  Sex: Male

DRUGS (1)
  1. TOCILIZUMAB [Suspect]
     Indication: RHEUMATOID ARTHRITIS
     Route: 065
     Dates: start: 201204

REACTIONS (9)
  - Pneumonia [Fatal]
  - Haemothorax [Fatal]
  - Thrombocytopenia [Fatal]
  - Respiratory failure [Fatal]
  - Bradycardia [Fatal]
  - Normochromic normocytic anaemia [Fatal]
  - Metastatic bronchial carcinoma [Fatal]
  - Rheumatoid lung [Unknown]
  - Ascites [Unknown]
